FAERS Safety Report 5941469-0 (Version None)
Quarter: 2008Q4

REPORT INFORMATION
  Report Type: 
  Country: None (occurrence: None)
  Receive Date: 20081103
  Receipt Date: 20081103
  Transmission Date: 20090506
  Serious: Yes (Other)
  Sender: FDA-Public Use
  Company Number: None

PATIENT
  Age: 43 Year
  Sex: Male
  Weight: 127.0072 kg

DRUGS (4)
  1. LYRICA [Suspect]
     Indication: INTERVERTEBRAL DISC DEGENERATION
     Dosage: 1 2X DAY PO
     Route: 048
     Dates: start: 20080919, end: 20081031
  2. LYRICA [Suspect]
     Indication: SPINAL OSTEOARTHRITIS
     Dosage: 1 2X DAY PO
     Route: 048
     Dates: start: 20080919, end: 20081031
  3. CARISOPRODOL [Suspect]
     Indication: MYELOPATHY
     Dosage: 1 2X DAY PO
     Route: 048
     Dates: start: 20080919, end: 20081031
  4. CARISOPRODOL [Suspect]
     Indication: RADICULOPATHY
     Dosage: 1 2X DAY PO
     Route: 048
     Dates: start: 20080919, end: 20081031

REACTIONS (2)
  - PULMONARY CONGESTION [None]
  - WHEEZING [None]
